FAERS Safety Report 8950718 (Version 3)
Quarter: 2013Q1

REPORT INFORMATION
  Report Type: Spontaneous
  Country: JP (occurrence: None)
  Receive Date: 20121128
  Receipt Date: 20121129
  Transmission Date: 20140127
  Serious: Yes (Hospitalization, Other)
  Sender: FDA-Public Use
  Company Number: ADR-2012-02137

PATIENT
  Age: 52 Year
  Sex: Male
  Weight: 51 kg

DRUGS (9)
  1. GABALON [Suspect]
     Dosage: 350 MCG/DAY
  2. SEROQUEL [Concomitant]
  3. CAFFEINE AND SODIUM BENZOATE [Concomitant]
  4. PURSENNID [Concomitant]
  5. MAGNESIUM OXIDE [Concomitant]
  6. DANTRIUM [Concomitant]
  7. REVOTRIL [Concomitant]
  8. MEXITIL [Concomitant]
  9. METHYCOBAL [Concomitant]

REACTIONS (2)
  - Meningitis [None]
  - White blood cell count decreased [None]
